FAERS Safety Report 5615174-4 (Version None)
Quarter: 2008Q1

REPORT INFORMATION
  Report Type: 
  Country: None (occurrence: None)
  Receive Date: 20080206
  Receipt Date: 20071113
  Transmission Date: 20080703
  Serious: No
  Sender: FDA-Public Use
  Company Number: A0691020A

PATIENT
  Age: 72 Year
  Sex: Male

DRUGS (5)
  1. ARIXTRA [Suspect]
     Dosage: 2.5MG PER DAY
     Route: 058
     Dates: start: 20071026
  2. GLIPIZIDE [Concomitant]
  3. METFORMIN HCL [Concomitant]
  4. ACID REFLUX MED. [Concomitant]
  5. THYROID TAB [Concomitant]

REACTIONS (1)
  - FAECES DISCOLOURED [None]
